FAERS Safety Report 9040388 (Version 1)
Quarter: 2013Q1

REPORT INFORMATION
  Report Type: Report from Study
  Country: US (occurrence: US)
  Receive Date: 20130129
  Receipt Date: 20130129
  Transmission Date: 20140127
  Serious: No
  Sender: FDA-Public Use
  Company Number: US-ABBOTT-12P-163-0894155-00

PATIENT
  Age: 57 None
  Sex: Male
  Weight: 106.24 kg

DRUGS (8)
  1. HUMIRA 40 MG/0.8 ML PEN [Suspect]
     Indication: PSORIASIS
     Dates: start: 201101, end: 201110
  2. HUMIRA 40 MG/0.8 ML PEN [Suspect]
     Dates: start: 201110, end: 201111
  3. HUMIRA 40 MG/0.8 ML PEN [Suspect]
     Dates: start: 201110, end: 201110
  4. SINGULAIR [Suspect]
     Indication: HYPERSENSITIVITY
     Dates: start: 201110, end: 201110
  5. CELEBREX [Concomitant]
     Indication: ARTHRITIS
  6. UNKNOWN MEDICATION [Concomitant]
     Indication: HYPERTENSION
  7. UNKNOWN MEDICATION [Concomitant]
     Indication: BLOOD CHOLESTEROL INCREASED
  8. SIMPONI [Concomitant]
     Indication: ARTHRITIS

REACTIONS (5)
  - Malaise [Not Recovered/Not Resolved]
  - Skin hypertrophy [Not Recovered/Not Resolved]
  - Skin fissures [Not Recovered/Not Resolved]
  - Urticaria [Recovered/Resolved]
  - Drug effect decreased [Not Recovered/Not Resolved]
